FAERS Safety Report 7917681-8 (Version None)
Quarter: 2011Q4

REPORT INFORMATION
  Report Type: 
  Country: None (occurrence: None)
  Receive Date: 20111116
  Receipt Date: 20111108
  Transmission Date: 20120403
  Serious: Yes (Hospitalization)
  Sender: FDA-Public Use
  Company Number: ES-SANOFI-AVENTIS-2011SA074585

PATIENT
  Age: 70 Year
  Sex: Male

DRUGS (4)
  1. DOCETAXEL [Suspect]
     Route: 042
  2. ALL OTHER THERAPEUTIC PRODUCTS [Suspect]
     Route: 048
     Dates: start: 20111012
  3. ALL OTHER THERAPEUTIC PRODUCTS [Suspect]
     Route: 048
  4. DOCETAXEL [Suspect]
     Route: 042
     Dates: start: 20111005

REACTIONS (1)
  - HYPOPHOSPHATAEMIA [None]
